FAERS Safety Report 8053293-6 (Version None)
Quarter: 2012Q1

REPORT INFORMATION
  Report Type: 
  Country: None (occurrence: None)
  Receive Date: 20120118
  Receipt Date: 20120110
  Transmission Date: 20120608
  Serious: Yes (Hospitalization, Other)
  Sender: FDA-Public Use
  Company Number: DK-JNJFOC-20111006940

PATIENT
  Sex: Female

DRUGS (4)
  1. REMICADE [Suspect]
     Indication: RHEUMATOID ARTHRITIS
     Route: 042
     Dates: start: 20100115, end: 20110506
  2. METHOTREXATE [Suspect]
     Indication: RHEUMATOID ARTHRITIS
     Route: 058
     Dates: start: 20080916, end: 20090603
  3. RITUXIMAB [Suspect]
     Indication: RHEUMATOID ARTHRITIS
     Dates: start: 20110411, end: 20110506
  4. METHOTREXATE [Suspect]
     Route: 058
     Dates: start: 20090720, end: 20110503

REACTIONS (2)
  - OROPHARYNGEAL CANCER STAGE UNSPECIFIED [None]
  - METASTASES TO LYMPH NODES [None]
